FAERS Safety Report 10399899 (Version 1)
Quarter: 2014Q1

REPORT INFORMATION
  Report Type: Spontaneous
  Country: US (occurrence: None)
  Receive Date: 20130815
  Receipt Date: 20130815
  Transmission Date: 20141002
  Serious: Yes (Hospitalization, Other)
  Sender: FDA-Public Use
  Company Number: ADR-2012-00355

PATIENT
  Sex: Male

DRUGS (2)
  1. BACLOFEN [Suspect]
     Indication: PAIN
     Dosage: UNKNOWN DOSE INFORMATION
  2. MORPHINE INTRATHECAL [Concomitant]

REACTIONS (4)
  - Drug withdrawal syndrome [None]
  - Agitation [None]
  - Pain [None]
  - Insomnia [None]
